FAERS Safety Report 9788780 (Version 1)
Quarter: 2013Q4

REPORT INFORMATION
  Report Type: Spontaneous
  Country: FR (occurrence: FR)
  Receive Date: 20131230
  Receipt Date: 20131230
  Transmission Date: 20140711
  Serious: Yes (Hospitalization)
  Sender: FDA-Public Use
  Company Number: FR-UCBSA-106559

PATIENT
  Age: 20 Year
  Sex: Male

DRUGS (1)
  1. VIMPAT [Suspect]
     Dosage: 150 MG
     Route: 048
     Dates: start: 2010

REACTIONS (3)
  - Ischaemic stroke [Unknown]
  - Convulsion [Unknown]
  - Overdose [Unknown]
